FAERS Safety Report 20224968 (Version 2)
Quarter: 2022Q1

REPORT INFORMATION
  Report Type: Report from Study
  Country: CA (occurrence: CA)
  Receive Date: 20211223
  Receipt Date: 20220114
  Transmission Date: 20220423
  Serious: Yes (Death, Life-Threatening, Hospitalization)
  Sender: FDA-Public Use
  Company Number: CA-ABBVIE-21P-028-4202410-00

PATIENT
  Age: 75 Year
  Sex: Male
  Weight: 64.8 kg

DRUGS (3)
  1. IBRUTINIB [Suspect]
     Active Substance: IBRUTINIB
     Indication: Mantle cell lymphoma
     Route: 048
     Dates: start: 20190424, end: 20211215
  2. VORICONAZOLE [Concomitant]
     Active Substance: VORICONAZOLE
     Indication: Respiratory tract infection
     Route: 048
     Dates: start: 20211105, end: 20211201
  3. ISAVUCONAZONIUM [Concomitant]
     Active Substance: ISAVUCONAZONIUM
     Indication: Respiratory tract infection
     Route: 048
     Dates: start: 20211202

REACTIONS (5)
  - Metabolic acidosis [Fatal]
  - Lymphoma [Fatal]
  - Multiple organ dysfunction syndrome [Fatal]
  - Tumour lysis syndrome [Recovered/Resolved]
  - Gastrointestinal haemorrhage [Unknown]

NARRATIVE: CASE EVENT DATE: 20211213
